FAERS Safety Report 8597642-9 (Version None)
Quarter: 2012Q3

REPORT INFORMATION
  Report Type: 
  Country: None (occurrence: None)
  Receive Date: 20120816
  Receipt Date: 20120808
  Transmission Date: 20120928
  Serious: Yes (Hospitalization)
  Sender: FDA-Public Use
  Company Number: CH-PFIZER INC-2012194688

PATIENT
  Sex: Female
  Weight: 65.8 kg

DRUGS (5)
  1. ESTRADIOL VALERATE [Concomitant]
     Indication: BLOOD LUTEINISING HORMONE DECREASED
     Dosage: UNK
     Dates: start: 19991215
  2. GENOTROPIN [Suspect]
     Dosage: 0.6 MG, 7/WK
     Route: 058
     Dates: start: 20041206
  3. PREDNISONE [Concomitant]
     Indication: BLOOD CORTICOTROPHIN DECREASED
     Dosage: UNK
     Dates: start: 19991215
  4. LEVOTHYROXINE [Concomitant]
     Indication: BLOOD THYROID STIMULATING HORMONE DECREASED
     Dosage: UNK
     Dates: start: 19991215
  5. ESTRADIOL VALERATE [Concomitant]
     Indication: BLOOD FOLLICLE STIMULATING HORMONE DECREASED

REACTIONS (1)
  - PYREXIA [None]
